FAERS Safety Report 12899894 (Version 3)
Quarter: 2016Q4

REPORT INFORMATION
  Report Type: Report from Study
  Country: KR (occurrence: KR)
  Receive Date: 20161101
  Receipt Date: 20161116
  Transmission Date: 20170207
  Serious: No
  Sender: FDA-Public Use
  Company Number: KR-HIKMA PHARMACEUTICALS CO. LTD-2016KR010442

PATIENT

DRUGS (13)
  1. SULFASALAZINE/ZOPYRIN [Concomitant]
     Indication: CROHN^S DISEASE
     Dosage: 1000 MG, TID
     Route: 048
     Dates: start: 20161021
  2. MUCOSTA [Concomitant]
     Active Substance: REBAMIPIDE
     Indication: GASTRITIS
     Dosage: 30 MG, TID
     Route: 048
     Dates: start: 20150130
  3. PANTOLINE [Concomitant]
     Active Substance: PANTOPRAZOLE SODIUM
     Indication: GASTROOESOPHAGEAL REFLUX DISEASE
     Dosage: 40 MG, TID
     Route: 042
     Dates: start: 20161021
  4. NUTRIFLEX LIPID                    /07403601/ [Concomitant]
     Indication: NUTRITIONAL SUPPLEMENTATION
     Dosage: 1250 ML, DAILY
     Route: 042
     Dates: start: 20161021
  5. REMSIMA [Suspect]
     Active Substance: INFLIXIMAB
     Indication: CROHN^S DISEASE
     Dosage: 5 MG/KG, 8 WEEKS
     Route: 042
  6. TRIAXONE [Concomitant]
     Indication: CROHN^S DISEASE
     Dosage: 2 G, DAILY
     Route: 042
     Dates: start: 20161021
  7. SALAZOPRINE EN [Concomitant]
     Indication: CROHN^S DISEASE
     Dosage: 100 MG, TID
     Route: 048
     Dates: start: 20150130
  8. ALLEGRA [Concomitant]
     Active Substance: FEXOFENADINE HYDROCHLORIDE
     Indication: ASTHMA
     Dosage: 120 MG, DAILY
     Route: 048
     Dates: start: 20150130
  9. METRONIDAZOLE. [Concomitant]
     Active Substance: METRONIDAZOLE
     Indication: CROHN^S DISEASE
     Dosage: 500 MG, TID
     Route: 042
     Dates: start: 20161021
  10. LANSOPRAZOLE. [Concomitant]
     Active Substance: LANSOPRAZOLE
     Indication: GASTROOESOPHAGEAL REFLUX DISEASE
     Dosage: 30 MG, DAILY
     Route: 048
     Dates: start: 20150130
  11. SINGULAIR [Concomitant]
     Active Substance: MONTELUKAST SODIUM
     Indication: ASTHMA
     Dosage: 10 MG, DAILY
     Route: 048
     Dates: start: 20150130
  12. TALION                             /01587402/ [Concomitant]
     Active Substance: BEPOTASTINE
     Indication: RHINITIS ALLERGIC
     Dosage: 10 MG, BID
     Route: 048
     Dates: start: 20150503
  13. FOLATE [Concomitant]
     Active Substance: FOLATE SODIUM
     Indication: CROHN^S DISEASE
     Dosage: 1 MG, TID
     Route: 048
     Dates: start: 20110311

REACTIONS (1)
  - Condition aggravated [Recovering/Resolving]

NARRATIVE: CASE EVENT DATE: 20161021
